FAERS Safety Report 9500556 (Version 1)
Quarter: 2013Q3

REPORT INFORMATION
  Report Type: Spontaneous
  Country: US (occurrence: None)
  Receive Date: 20130903
  Receipt Date: 20130903
  Transmission Date: 20140515
  Serious: Yes (Death, Hospitalization)
  Sender: FDA-Public Use
  Company Number: IPC201307-000284

PATIENT
  Age: 75 Year
  Sex: Female

DRUGS (1)
  1. HYDROXYCHLOROQUINE SULFATE (HYDROXYCHLOROQUINE SULFATE) (HYDROXYCHLOROQUINE SULFATE) [Suspect]
     Dosage: 400 MG/D

REACTIONS (7)
  - Acute myocardial infarction [None]
  - Aortic dissection [None]
  - Left ventricular hypertrophy [None]
  - Coronary artery thrombosis [None]
  - Coronary artery stenosis [None]
  - Myocardial fibrosis [None]
  - Cardiomyopathy [None]
